FAERS Safety Report 9236865 (Version 1)
Quarter: 2013Q2

REPORT INFORMATION
  Report Type: Other
  Country: GB (occurrence: GB)
  Receive Date: 20130417
  Receipt Date: 20130417
  Transmission Date: 20140414
  Serious: Yes (Death, Hospitalization)
  Sender: FDA-Public Use
  Company Number: GB-ACTAVIS-2013-06518

PATIENT
  Age: 12 Year
  Sex: Female

DRUGS (8)
  1. PARACETAMOL (UNKNOWN) [Suspect]
     Indication: MALAISE
     Dosage: UNK
     Route: 065
  2. PARACETAMOL (UNKNOWN) [Suspect]
     Indication: PAIN
  3. PARACETAMOL (UNKNOWN) [Suspect]
     Indication: HEADACHE
  4. PARACETAMOL (UNKNOWN) [Suspect]
     Indication: PYREXIA
  5. IBUPROFEN (UNKNOWN) [Suspect]
     Indication: PAIN
     Dosage: UNK
     Route: 065
  6. IBUPROFEN (UNKNOWN) [Suspect]
     Indication: HEADACHE
  7. IBUPROFEN (UNKNOWN) [Suspect]
     Indication: PYREXIA
  8. IBUPROFEN (UNKNOWN) [Suspect]
     Indication: MALAISE

REACTIONS (7)
  - Brain oedema [Fatal]
  - Pulmonary oedema [Fatal]
  - Meningitis streptococcal [Fatal]
  - Rash [Fatal]
  - Toxic shock syndrome streptococcal [Fatal]
  - Adrenal haemorrhage [Fatal]
  - Infection [Fatal]
